FAERS Safety Report 15112244 (Version 1)
Quarter: 2018Q3

REPORT INFORMATION
  Report Type: Spontaneous
  Country: IT (occurrence: IT)
  Receive Date: 20180705
  Receipt Date: 20180705
  Transmission Date: 20181010
  Serious: Yes (Other)
  Sender: FDA-Public Use
  Company Number: IT-BAYER-2018-121769

PATIENT
  Age: 39 Year
  Sex: Female

DRUGS (4)
  1. REGORAFENIB. [Suspect]
     Active Substance: REGORAFENIB
     Indication: METASTASES TO LUNG
     Dosage: 120 MG
     Route: 048
  2. REGORAFENIB. [Suspect]
     Active Substance: REGORAFENIB
     Indication: COLON NEOPLASM
     Dosage: 80 MG
     Route: 048
     Dates: end: 201708
  3. REGORAFENIB. [Suspect]
     Active Substance: REGORAFENIB
     Indication: COLON NEOPLASM
     Dosage: 160 MG, QD FOR 21 DAYS ON, 7 DAYS OFF
     Route: 048
     Dates: start: 20160218, end: 20170823
  4. CAPECITABINE. [Concomitant]
     Active Substance: CAPECITABINE
     Dosage: 2000 MG / SQ.M / DAY FOR OS GG1} 14 EVERY 21 DAYS
     Dates: start: 20170906, end: 201806

REACTIONS (4)
  - Metastases to lung [None]
  - Hyperkeratosis [None]
  - Skin toxicity [None]
  - Palmar-plantar erythrodysaesthesia syndrome [None]

NARRATIVE: CASE EVENT DATE: 201708
